FAERS Safety Report 7224943-9 (Version None)
Quarter: 2011Q1

REPORT INFORMATION
  Report Type: 
  Country: None (occurrence: None)
  Receive Date: 20110113
  Receipt Date: 20110104
  Transmission Date: 20110831
  Serious: Yes (Death, Hospitalization, Other)
  Sender: FDA-Public Use
  Company Number: BR-MEDIMMUNE-MEDI-0011631

PATIENT
  Sex: Male
  Weight: 5.8 kg

DRUGS (8)
  1. SYNAGIS [Suspect]
     Indication: CARDIAC DISORDER
     Route: 030
     Dates: start: 20100701
  2. CAPTOPRIL [Concomitant]
     Indication: CARDIAC DISORDER
     Dates: start: 20091127, end: 20101118
  3. FOLIC ACID [Concomitant]
     Dates: start: 20101001, end: 20101118
  4. CARVEDILOL [Concomitant]
     Route: 048
  5. L-CARNITINE [Concomitant]
     Indication: VITAMIN SUPPLEMENTATION
     Route: 048
  6. DIGOXIN [Concomitant]
     Route: 048
     Dates: start: 20091127, end: 20101118
  7. SPIRONOLACTONE [Concomitant]
     Route: 048
     Dates: start: 20091127, end: 20101118
  8. FERROGLYCINATE CHELATE [Concomitant]
     Route: 048
     Dates: start: 20091127, end: 20101118

REACTIONS (14)
  - ACUTE PULMONARY OEDEMA [None]
  - PULMONARY CONGESTION [None]
  - HYPERTROPHIC CARDIOMYOPATHY [None]
  - CARDIAC FAILURE [None]
  - RESPIRATORY FAILURE [None]
  - PULMONARY HAEMORRHAGE [None]
  - CYANOSIS [None]
  - DYSPNOEA [None]
  - GASTROINTESTINAL INFECTION [None]
  - ANAEMIA [None]
  - CARDIAC ARREST [None]
  - CONVULSION [None]
  - CARDIOGENIC SHOCK [None]
  - PNEUMONIA [None]
